FAERS Safety Report 11021033 (Version 1)
Quarter: 2015Q2

REPORT INFORMATION
  Report Type: Spontaneous
  Country: MY (occurrence: MY)
  Receive Date: 20150413
  Receipt Date: 20150413
  Transmission Date: 20150821
  Serious: Yes (Other)
  Sender: FDA-Public Use
  Company Number: MY-SUN PHARMACEUTICAL INDUSTRIES LTD-2015RR-94623

PATIENT
  Age: 31 Year
  Sex: Male

DRUGS (1)
  1. DILTIAZEM [Suspect]
     Active Substance: DILTIAZEM
     Indication: PROTEINURIA
     Dosage: UNK
     Route: 065

REACTIONS (2)
  - Hepatic fibrosis [Recovered/Resolved]
  - Cholestasis [Recovered/Resolved]
